FAERS Safety Report 6441104-1 (Version None)
Quarter: 2009Q4

REPORT INFORMATION
  Report Type: 
  Country: None (occurrence: None)
  Receive Date: 20091116
  Receipt Date: 20091104
  Transmission Date: 20100525
  Serious: Yes (Other)
  Sender: FDA-Public Use
  Company Number: DE-ROCHE-668149

PATIENT
  Age: 5 Year
  Sex: Male

DRUGS (3)
  1. CELLCEPT [Suspect]
     Indication: HAEMOPHILIA B WITH ANTI FACTOR IX
     Route: 042
     Dates: start: 20091026
  2. MABTHERA [Concomitant]
     Indication: HAEMOPHILIA B WITH ANTI FACTOR IX
  3. DEXAMETHASONE TAB [Concomitant]
     Indication: HAEMOPHILIA B WITH ANTI FACTOR IX

REACTIONS (1)
  - BLOOD FIBRINOGEN DECREASED [None]
